FAERS Safety Report 16573552 (Version 3)
Quarter: 2019Q3

REPORT INFORMATION
  Report Type: Spontaneous
  Country: CH (occurrence: CH)
  Receive Date: 20190715
  Receipt Date: 20190927
  Transmission Date: 20191004
  Serious: Yes (Hospitalization)
  Sender: FDA-Public Use
  Company Number: CH-NOVOPROD-672800

PATIENT
  Age: 42 Year
  Sex: Male
  Weight: 110 kg

DRUGS (8)
  1. NOVORAPID [Suspect]
     Active Substance: INSULIN ASPART
     Indication: TYPE 1 DIABETES MELLITUS
     Dosage: 31.30 IU, QOD
     Route: 058
     Dates: start: 20190622
  2. TARKA [Concomitant]
     Active Substance: TRANDOLAPRIL\VERAPAMIL HYDROCHLORIDE
     Dosage: 100.00 MG, QD
     Route: 048
  3. QUETIAPINE. [Concomitant]
     Active Substance: QUETIAPINE
     Dosage: 200.00 MG, QD
     Route: 048
  4. SOMNIUM [DIPHENHYDRAMINE HYDROCHLORIDE;LORAZEPAM] [Concomitant]
     Dosage: UNK
     Route: 048
  5. DISTRANEURINE [CLOMETHIAZOLE EDISILATE] [Concomitant]
     Route: 048
  6. FLUOXETIN [Concomitant]
     Active Substance: FLUOXETINE HYDROCHLORIDE
     Dosage: 60.00 MG, QD
     Route: 048
  7. RIVOTRIL [Concomitant]
     Active Substance: CLONAZEPAM
     Dosage: 2.00 GTT (DROPS), QD
     Route: 048
  8. BRINTELLIX [Concomitant]
     Active Substance: VORTIOXETINE HYDROBROMIDE
     Dosage: 20.00 MG, QD
     Route: 048

REACTIONS (1)
  - Diabetic ketoacidosis [Recovered/Resolved]

NARRATIVE: CASE EVENT DATE: 20190703
